FAERS Safety Report 7748367-0 (Version None)
Quarter: 2011Q3

REPORT INFORMATION
  Report Type: 
  Country: None (occurrence: None)
  Receive Date: 20110913
  Receipt Date: 20110829
  Transmission Date: 20111222
  Serious: Yes (Death, Hospitalization, Other)
  Sender: FDA-Public Use
  Company Number: JP-GENENTECH-324178

PATIENT
  Sex: Male

DRUGS (51)
  1. TOCILIZUMAB [Suspect]
     Dosage: 420 MG, Q2W
     Route: 041
     Dates: start: 20100521, end: 20100604
  2. PREDNISOLONE [Suspect]
     Dosage: 30 MG, BID
     Route: 048
     Dates: start: 20100410, end: 20100414
  3. PREDNISOLONE [Suspect]
     Dosage: 60 MG, BID
     Route: 042
  4. VINCRISTINE [Suspect]
     Indication: CASTLEMAN'S DISEASE
     Dosage: 2 MG, QAM
     Route: 042
  5. SUNRYTHM [Concomitant]
     Indication: PRODUCT USED FOR UNKNOWN INDICATION
     Dosage: 50 MG, TID
     Route: 048
     Dates: start: 20100326, end: 20100512
  6. PREDNISOLONE [Suspect]
     Dosage: 30 MG, BID
     Route: 048
     Dates: start: 20100323, end: 20100331
  7. PREDNISOLONE [Suspect]
     Dosage: 40 MG, QAM
     Route: 048
     Dates: start: 20100406, end: 20100409
  8. PREDNISOLONE [Suspect]
     Dosage: 15 MG, BID
     Route: 048
     Dates: start: 20100526, end: 20100607
  9. VINCRISTINE [Suspect]
     Dosage: 2 MG, QAM
     Route: 042
  10. ALBUMIN (HUMAN) [Concomitant]
     Indication: PRODUCT USED FOR UNKNOWN INDICATION
     Dosage: UNK
     Route: 042
     Dates: start: 20100414, end: 20100416
  11. VERAPAMIL HCL [Concomitant]
     Dosage: 40 MG, BID
     Route: 042
     Dates: start: 20100614, end: 20100625
  12. PREDNISOLONE [Suspect]
     Dosage: 20 MG, BID
     Route: 048
     Dates: start: 20100503, end: 20100511
  13. PREDNISOLONE [Suspect]
     Dosage: 50 MG, BID
     Route: 042
  14. SULFAMETHOXAZOLE [Concomitant]
     Indication: PRODUCT USED FOR UNKNOWN INDICATION
     Dosage: 4 DF, 2/WEEK
     Route: 048
     Dates: start: 20100204, end: 20100614
  15. METFORMIN HCL [Concomitant]
     Indication: PRODUCT USED FOR UNKNOWN INDICATION
     Dosage: 250 MG, BID
     Route: 048
     Dates: start: 20100308, end: 20100601
  16. PREDNISOLONE [Suspect]
     Dosage: 25 MG, QAM
     Route: 048
     Dates: start: 20100318, end: 20100322
  17. PREDNISOLONE [Suspect]
     Dosage: 40 MG, BID
     Route: 048
     Dates: start: 20100401, end: 20100405
  18. CYCLOPHOSPHAMIDE [Suspect]
     Dosage: 1200 MG, QAM
     Route: 042
  19. FUROSEMIDE [Concomitant]
     Dosage: 20 MG, QAM
     Route: 042
     Dates: start: 20100104, end: 20100607
  20. FUROSEMIDE [Concomitant]
     Dosage: 20 MG, QAM
     Route: 042
     Dates: start: 20100706, end: 20100904
  21. LOXONIN [Concomitant]
     Indication: PRODUCT USED FOR UNKNOWN INDICATION
     Dosage: 60 MG, QAM
     Route: 048
     Dates: start: 20100119, end: 20100408
  22. DISOPYRAMIDE PHOSPHATE [Concomitant]
     Indication: PRODUCT USED FOR UNKNOWN INDICATION
     Dosage: 50 MG, QAM
     Route: 048
     Dates: start: 20100614, end: 20100628
  23. RITUXIMAB [Suspect]
     Dosage: 590 MG, QAM
     Route: 042
  24. PREDNISOLONE [Suspect]
     Dosage: 45 MG, QAM
     Route: 048
     Dates: start: 20100218, end: 20100224
  25. PREDNISOLONE [Suspect]
     Dosage: 35 MG, QAM
     Route: 048
     Dates: start: 20100304, end: 20100310
  26. PREDNISOLONE [Suspect]
     Dosage: 30 MG, QAM
     Route: 048
     Dates: start: 20100311, end: 20100317
  27. PREDNISOLONE [Suspect]
     Dosage: 25 MG, BID
     Route: 048
     Dates: start: 20100415, end: 20100423
  28. PREDNISOLONE [Suspect]
     Dosage: 45 MG, QAM
     Route: 048
     Dates: start: 20100424, end: 20100502
  29. PREDNISOLONE [Suspect]
     Dosage: 50 MG, BID
     Route: 042
  30. CYCLOPHOSPHAMIDE [Suspect]
     Indication: CASTLEMAN'S DISEASE
     Dosage: 1200 MG, QAM
     Route: 042
  31. SOLDACTONE [Concomitant]
     Dosage: 100 MG, BID
     Route: 042
     Dates: start: 20100415, end: 20100419
  32. RABEPRAZOLE SODIUM [Concomitant]
     Indication: PRODUCT USED FOR UNKNOWN INDICATION
     Dosage: 10 MG, QAM
     Route: 054
     Dates: start: 20100122, end: 20100627
  33. TOCILIZUMAB [Suspect]
     Indication: CASTLEMAN'S DISEASE
     Dosage: 472 MG, Q2W
     Route: 041
     Dates: start: 20100408, end: 20100422
  34. PREDNISOLONE [Suspect]
     Dosage: 40 MG, QAM
     Route: 048
     Dates: start: 20100225, end: 20100303
  35. PREDNISOLONE [Suspect]
     Dosage: 35 MG, QAM
     Route: 048
     Dates: start: 20100512, end: 20100525
  36. PREDNISOLONE [Suspect]
     Dosage: 30 MG, BID
     Route: 048
     Dates: start: 20100608, end: 20100610
  37. PREDNISOLONE [Suspect]
     Dosage: 90 MG, QAM
     Route: 042
  38. FUROSEMIDE [Concomitant]
     Dosage: 20 MG, BID
     Route: 042
     Dates: start: 20100415, end: 20100419
  39. FUROSEMIDE [Concomitant]
     Dosage: 40 MG, BID
     Route: 042
     Dates: start: 20100608, end: 20100627
  40. LENDORMIN [Concomitant]
     Indication: PRODUCT USED FOR UNKNOWN INDICATION
     Dosage: .25 MG, QAM
     Route: 048
     Dates: start: 20100210, end: 20100626
  41. TOCILIZUMAB [Suspect]
     Dosage: 440 MG, Q2W
     Route: 041
     Dates: start: 20100507, end: 20100507
  42. PREDNISOLONE [Suspect]
     Dosage: 50 MG, QAM
     Route: 048
     Dates: start: 20100213, end: 20100217
  43. PREDNISOLONE [Suspect]
     Dosage: 40 MG, BID
     Route: 042
  44. FUROSEMIDE [Concomitant]
     Indication: PRODUCT USED FOR UNKNOWN INDICATION
     Dosage: 20 MG, QAM
     Route: 042
     Dates: start: 20100408, end: 20100414
  45. RITUXIMAB [Suspect]
     Indication: CASTLEMAN'S DISEASE
     Dosage: 590 MG, QAM
     Route: 042
  46. PREDNISOLONE [Suspect]
     Indication: CASTLEMAN'S DISEASE
     Dosage: 20 MG, TID
     Route: 048
     Dates: start: 20100122, end: 20100212
  47. SOLU-MEDROL [Concomitant]
     Indication: PRODUCT USED FOR UNKNOWN INDICATION
     Dosage: 1000 MG, QAM
     Route: 042
     Dates: start: 20100611, end: 20100613
  48. NOVO-HEPARIN [Concomitant]
     Indication: PRODUCT USED FOR UNKNOWN INDICATION
     Dosage: 7000 IU, QAM
     Route: 042
     Dates: start: 20100326, end: 20100410
  49. SOLDACTONE [Concomitant]
     Indication: PRODUCT USED FOR UNKNOWN INDICATION
     Dosage: 100 MG, QAM
     Route: 042
     Dates: start: 20100408, end: 20100414
  50. VERAPAMIL HCL [Concomitant]
     Indication: PRODUCT USED FOR UNKNOWN INDICATION
     Dosage: 40 MG, TID
     Route: 048
     Dates: start: 20100327, end: 20100616
  51. ITRACONAZOLE [Concomitant]
     Indication: PRODUCT USED FOR UNKNOWN INDICATION
     Dosage: 200 MG, QAM
     Route: 048
     Dates: start: 20100324, end: 20100414

REACTIONS (12)
  - PNEUMONIA [None]
  - CONSTIPATION [None]
  - NEUTROPENIA [None]
  - GASTROINTESTINAL HAEMORRHAGE [None]
  - URINARY TRACT INFECTION [None]
  - CASTLEMAN'S DISEASE [None]
  - CYTOMEGALOVIRUS INFECTION [None]
  - HEPATIC FUNCTION ABNORMAL [None]
  - ASPERGILLOSIS [None]
  - DISSEMINATED INTRAVASCULAR COAGULATION [None]
  - HYPOCOAGULABLE STATE [None]
  - IRON DEFICIENCY ANAEMIA [None]
